FAERS Safety Report 17445833 (Version 1)
Quarter: 2020Q1

REPORT INFORMATION
  Report Type: Spontaneous
  Country: FR (occurrence: FR)
  Receive Date: 20200221
  Receipt Date: 20200221
  Transmission Date: 20200409
  Serious: Yes (Hospitalization)
  Sender: FDA-Public Use
  Company Number: FR-MYLANLABS-2020M1018310

PATIENT
  Age: 62 Year
  Sex: Male
  Weight: 97 kg

DRUGS (6)
  1. FUCIDINE                           /00065702/ [Interacting]
     Active Substance: FUSIDATE SODIUM
     Indication: DEVICE RELATED INFECTION
     Dosage: 1500 MILLIGRAM, QD
     Route: 048
     Dates: start: 20191017, end: 20191205
  2. ATORVASTATIN [Suspect]
     Active Substance: ATORVASTATIN
     Indication: HYPERCHOLESTEROLAEMIA
     Dosage: 40 MILLIGRAM, QD
     Route: 048
     Dates: start: 2017, end: 20191205
  3. PANTOPRAZOLE [Concomitant]
     Active Substance: PANTOPRAZOLE
     Dosage: 40 MILLIGRAM, QD
     Route: 048
     Dates: start: 2017
  4. PAROXETINE. [Concomitant]
     Active Substance: PAROXETINE
     Dosage: 20 MILLIGRAM, QD
     Route: 048
     Dates: start: 2017
  5. ASPIRINE PROTECT [Concomitant]
     Active Substance: ASPIRIN
     Dosage: 100 MILLIGRAM, QD
     Route: 048
  6. LEVOFLOXACINE ARROW [Concomitant]
     Active Substance: LEVOFLOXACIN
     Indication: DEVICE RELATED INFECTION
     Dosage: 500 MILLIGRAM, BID (12 HOURS)
     Route: 048
     Dates: start: 20190927, end: 20191205

REACTIONS (5)
  - Rhabdomyolysis [Recovering/Resolving]
  - Product dispensing error [Recovered/Resolved]
  - Drug interaction [Unknown]
  - Hepatocellular injury [Recovering/Resolving]
  - Product prescribing error [Recovered/Resolved]

NARRATIVE: CASE EVENT DATE: 20191017
